FAERS Safety Report 20324094 (Version 1)
Quarter: 2022Q1

REPORT INFORMATION
  Report Type: Spontaneous
  Country: CN (occurrence: CN)
  Receive Date: 20220111
  Receipt Date: 20220111
  Transmission Date: 20220423
  Serious: Yes (Other)
  Sender: FDA-Public Use
  Company Number: CN-PFIZER INC-202200001148

PATIENT
  Age: 17 Year
  Sex: Male

DRUGS (3)
  1. SOLU-MEDROL [Suspect]
     Active Substance: METHYLPREDNISOLONE SODIUM SUCCINATE
     Indication: Prophylaxis against transplant rejection
     Dosage: 40 MG, 2X/DAY
     Route: 041
     Dates: start: 20210916, end: 202109
  2. SOLU-MEDROL [Suspect]
     Active Substance: METHYLPREDNISOLONE SODIUM SUCCINATE
     Dosage: 30 MG, 2X/DAY
     Route: 041
     Dates: start: 20210924, end: 20210929
  3. SODIUM CHLORIDE [Concomitant]
     Active Substance: SODIUM CHLORIDE
     Dosage: 100 ML, 2X/DAY
     Route: 041
     Dates: start: 20210916, end: 20210929

REACTIONS (2)
  - Blood glucose increased [Unknown]
  - Metabolic disorder [Unknown]

NARRATIVE: CASE EVENT DATE: 20210924
